FAERS Safety Report 18856397 (Version 1)
Quarter: 2021Q1

REPORT INFORMATION
  Report Type: Spontaneous
  Country: US (occurrence: US)
  Receive Date: 20210207
  Receipt Date: 20210207
  Transmission Date: 20210420
  Serious: No
  Sender: FDA-Public Use
  Company Number: US-PERRIGO-20US010631

PATIENT
  Age: 64 Year
  Sex: Female
  Weight: 72.56 kg

DRUGS (2)
  1. TRETINOIN. [Suspect]
     Active Substance: TRETINOIN
     Indication: SKIN WRINKLING
     Dosage: SMALL AMOUNT, EVERY NIGHT
     Route: 061
     Dates: start: 2017, end: 202001
  2. TRETINOIN. [Suspect]
     Active Substance: TRETINOIN
     Dosage: SMALL AMOUNT, EVERY NIGHT
     Route: 061
     Dates: start: 200001, end: 202006

REACTIONS (2)
  - Drug ineffective for unapproved indication [Unknown]
  - Drug effective for unapproved indication [Recovered/Resolved]

NARRATIVE: CASE EVENT DATE: 2017
